FAERS Safety Report 10416052 (Version 3)
Quarter: 2014Q4

REPORT INFORMATION
  Report Type: Spontaneous
  Country: US (occurrence: US)
  Receive Date: 20140828
  Receipt Date: 20141017
  Transmission Date: 20150528
  Serious: No
  Sender: FDA-Public Use
  Company Number: US-PFIZER INC-2014238810

PATIENT
  Age: 28 Year
  Sex: Female
  Weight: 61.22 kg

DRUGS (5)
  1. LYRICA [Suspect]
     Active Substance: PREGABALIN
     Indication: FRACTURE
  2. BACLOFEN. [Concomitant]
     Active Substance: BACLOFEN
     Dosage: 10 MG, UNK
  3. LYRICA [Suspect]
     Active Substance: PREGABALIN
     Indication: INTERVERTEBRAL DISC PROTRUSION
     Dosage: 100 MG, 3X/DAY
     Route: 048
     Dates: start: 201408
  4. LYRICA [Suspect]
     Active Substance: PREGABALIN
     Indication: NERVE INJURY
     Dosage: 250 MG, DAILY (2 CAPSULES OF 50MG IN MORNING 1 CAPSULE OF 50MG IN AFTERNOON AND 2 CAPSULES OF 50MG)
     Route: 048
     Dates: start: 20140808, end: 201408
  5. LYRICA [Suspect]
     Active Substance: PREGABALIN
     Indication: SCIATICA
     Dosage: 250 MG, DAILY
     Route: 048
     Dates: start: 201408, end: 201408

REACTIONS (4)
  - Hypoaesthesia oral [Unknown]
  - Mobility decreased [Unknown]
  - Activities of daily living impaired [Unknown]
  - Gait disturbance [Unknown]

NARRATIVE: CASE EVENT DATE: 2014
